FAERS Safety Report 6386559-6 (Version None)
Quarter: 2009Q4

REPORT INFORMATION
  Report Type: 
  Country: None (occurrence: None)
  Receive Date: 20091002
  Receipt Date: 20090323
  Transmission Date: 20100525
  Serious: Yes (Other)
  Sender: FDA-Public Use
  Company Number: US-ASTRAZENECA-2009UW07318

PATIENT
  Sex: Female
  Weight: 86.2 kg

DRUGS (2)
  1. ARIMIDEX [Suspect]
     Indication: NEOPLASM MALIGNANT
     Route: 048
     Dates: start: 20080501
  2. VERAPAMIL [Concomitant]
     Indication: HYPERTENSION

REACTIONS (4)
  - ARTHRALGIA [None]
  - FINGER DEFORMITY [None]
  - PAIN IN EXTREMITY [None]
  - WEIGHT INCREASED [None]
